FAERS Safety Report 15196310 (Version 1)
Quarter: 2018Q3

REPORT INFORMATION
  Report Type: Report from Study
  Country: US (occurrence: US)
  Receive Date: 20180725
  Receipt Date: 20180725
  Transmission Date: 20181010
  Serious: Yes (Death, Hospitalization, Other)
  Sender: FDA-Public Use
  Company Number: US-PFIZER INC-2018223463

PATIENT
  Age: 40 Year
  Sex: Female

DRUGS (1)
  1. IBRANCE [Suspect]
     Active Substance: PALBOCICLIB
     Indication: BREAST CANCER FEMALE
     Dosage: 125 MG, ONCE DAILY
     Route: 048
     Dates: start: 20180526, end: 20180707

REACTIONS (12)
  - Death [Fatal]
  - Hypoaesthesia [Unknown]
  - Dysphagia [Unknown]
  - Pleurisy [Unknown]
  - Hypocalcaemia [Unknown]
  - Hypoaesthesia oral [Unknown]
  - Asthenia [Unknown]
  - Contusion [Recovered/Resolved]
  - Swelling [Unknown]
  - Bone disorder [Unknown]
  - Hypokalaemia [Unknown]
  - Somnolence [Unknown]

NARRATIVE: CASE EVENT DATE: 2018
